FAERS Safety Report 6290688-5 (Version None)
Quarter: 2009Q3

REPORT INFORMATION
  Report Type: 
  Country: None (occurrence: None)
  Receive Date: 20090730
  Receipt Date: 20090721
  Transmission Date: 20100115
  Serious: Yes (Hospitalization)
  Sender: FDA-Public Use
  Company Number: FR-WYE-H09237209

PATIENT
  Sex: Female

DRUGS (10)
  1. CORDARONE [Suspect]
     Indication: ATRIAL FIBRILLATION
     Route: 048
     Dates: start: 20090201, end: 20090327
  2. TAHOR [Concomitant]
     Indication: DYSLIPIDAEMIA
     Route: 048
     Dates: end: 20090324
  3. NOVORAPID [Concomitant]
     Indication: TYPE 2 DIABETES MELLITUS
     Route: 058
     Dates: start: 20050901
  4. NOVOMIX [Concomitant]
     Indication: TYPE 2 DIABETES MELLITUS
     Route: 058
     Dates: start: 20050901
  5. LASIX [Concomitant]
     Indication: DRUG USE FOR UNKNOWN INDICATION
     Route: 048
     Dates: end: 20090325
  6. ZYLORIC [Concomitant]
     Indication: GOUT
     Route: 048
     Dates: end: 20090319
  7. CARDENSIEL [Concomitant]
     Indication: DRUG USE FOR UNKNOWN INDICATION
     Route: 048
  8. KARDEGIC [Concomitant]
     Indication: ARTERIAL DISORDER
     Route: 048
  9. TEMESTA [Concomitant]
     Indication: SLEEP DISORDER
     Route: 048
     Dates: end: 20090317
  10. BIPRETERAX [Concomitant]
     Indication: HYPERTENSION
     Route: 048
     Dates: start: 20050901, end: 20090324

REACTIONS (8)
  - ASTHENIA [None]
  - CARDIO-RESPIRATORY ARREST [None]
  - HEPATIC ENZYME INCREASED [None]
  - HYPOTHYROIDISM [None]
  - JAUNDICE [None]
  - MALAISE [None]
  - SKIN DISCOLOURATION [None]
  - SYNCOPE [None]
